FAERS Safety Report 5508517-3 (Version None)
Quarter: 2007Q4

REPORT INFORMATION
  Report Type: 
  Country: None (occurrence: None)
  Receive Date: 20071031
  Receipt Date: 20070815
  Transmission Date: 20080405
  Serious: No
  Sender: FDA-Public Use
  Company Number: 200711114BWH

PATIENT
  Age: 42 Year
  Sex: Male

DRUGS (6)
  1. NEXAVAR [Suspect]
     Indication: METASTASES TO LUNG
     Dosage: 400 MG BID ORAL
     Route: 048
     Dates: start: 20070331
  2. NEXAVAR [Suspect]
     Indication: METASTASIS
     Dosage: 400 MG BID ORAL
     Route: 048
     Dates: start: 20070331
  3. NEXAVAR [Suspect]
     Indication: RENAL CELL CARCINOMA STAGE UNSPECIFIED
     Dosage: 400 MG BID ORAL
     Route: 048
     Dates: start: 20070331
  4. MORPHINE [Concomitant]
  5. OMEPRAZOLE [Concomitant]
  6. VITAMIN B-12 [Concomitant]

REACTIONS (3)
  - EAR CONGESTION [None]
  - NASAL CONGESTION [None]
  - SINUS DISORDER [None]
